FAERS Safety Report 12924209 (Version 3)
Quarter: 2016Q4

REPORT INFORMATION
  Report Type: Spontaneous
  Country: DE (occurrence: DE)
  Receive Date: 20161109
  Receipt Date: 20161226
  Transmission Date: 20170207
  Serious: Yes (Other)
  Sender: FDA-Public Use
  Company Number: PHHY2016DE150088

PATIENT
  Sex: Female

DRUGS (1)
  1. COSENTYX [Suspect]
     Active Substance: SECUKINUMAB
     Indication: PRODUCT USED FOR UNKNOWN INDICATION
     Dosage: 300 MG PER MONTH
     Route: 065

REACTIONS (7)
  - Deafness [Unknown]
  - Fatigue [Unknown]
  - Apathy [Unknown]
  - Arthropathy [Unknown]
  - Cough [Unknown]
  - Rash pustular [Unknown]
  - Pain [Unknown]
